FAERS Safety Report 18346352 (Version 1)
Quarter: 2020Q4

REPORT INFORMATION
  Report Type: Report from Study
  Country: None (occurrence: CL)
  Receive Date: 20201006
  Receipt Date: 20201006
  Transmission Date: 20210114
  Serious: Yes (Hospitalization, Other)
  Sender: FDA-Public Use
  Company Number: CL-ABBVIE-20K-034-3591386-00

PATIENT
  Age: 41 Year
  Sex: Male

DRUGS (1)
  1. HUMIRA [Suspect]
     Active Substance: ADALIMUMAB
     Indication: ANKYLOSING SPONDYLITIS
     Route: 058
     Dates: start: 20181101, end: 2020

REACTIONS (3)
  - Pneumonia [Recovering/Resolving]
  - Pulmonary thrombosis [Recovering/Resolving]
  - Pulmonary mass [Recovering/Resolving]

NARRATIVE: CASE EVENT DATE: 20200917
